FAERS Safety Report 6774968-2 (Version None)
Quarter: 2010Q2

REPORT INFORMATION
  Report Type: 
  Country: None (occurrence: None)
  Receive Date: 20100617
  Receipt Date: 20100609
  Transmission Date: 20101027
  Serious: Yes (Death, Life-Threatening)
  Sender: FDA-Public Use
  Company Number: US-B.I. PHARMACEUTICALS,INC./RIDGEFIELD-2010-BP-06787PF

PATIENT
  Sex: Female
  Weight: 86.18 kg

DRUGS (7)
  1. SPIRIVA [Suspect]
     Indication: ASTHMA
     Route: 055
  2. LYRICA [Suspect]
     Indication: FIBROMYALGIA
     Route: 048
     Dates: start: 20080801
  3. HYDROCODONE [Suspect]
     Indication: PAIN
  4. AMITRIPTYLINE [Suspect]
     Indication: SLEEP DISORDER
  5. LORAZEPAM [Suspect]
     Indication: ANXIETY
  6. COMPRESSED OXYGEN [Concomitant]
     Indication: ASTHMA
  7. COMPRESSED OXYGEN [Concomitant]
     Indication: DYSPNOEA

REACTIONS (2)
  - INTENTIONAL OVERDOSE [None]
  - SUICIDAL IDEATION [None]
